FAERS Safety Report 6508733-8 (Version None)
Quarter: 2009Q4

REPORT INFORMATION
  Report Type: 
  Country: None (occurrence: None)
  Receive Date: 20091221
  Receipt Date: 20090804
  Transmission Date: 20100525
  Serious: No
  Sender: FDA-Public Use
  Company Number: US-ASTRAZENECA-2009SE06902

PATIENT
  Age: 69 Year
  Sex: Female

DRUGS (8)
  1. CRESTOR [Suspect]
     Route: 048
     Dates: start: 20090501
  2. ATENOLOL [Concomitant]
  3. SYNTHROID [Concomitant]
  4. AVAPRO [Concomitant]
  5. FUROSEMIDE [Concomitant]
  6. CO-Q-10 [Concomitant]
  7. POTASSIUM CHLORIDE [Concomitant]
  8. WARFARIN SODIUM [Concomitant]

REACTIONS (2)
  - MYALGIA [None]
  - WEIGHT INCREASED [None]
